FAERS Safety Report 5018327-1 (Version None)
Quarter: 2006Q2

REPORT INFORMATION
  Report Type: 
  Country: None (occurrence: None)
  Receive Date: 20060530
  Receipt Date: 20050513
  Transmission Date: 20061013
  Serious: Yes (Hospitalization)
  Sender: FDA-Public Use
  Company Number: 2005075406

PATIENT
  Age: 54 Year
  Sex: Female
  Weight: 59 kg

DRUGS (10)
  1. LYRICA [Suspect]
     Indication: PAIN
     Dosage: 2 IN 1 D, ORAL
     Route: 048
     Dates: start: 20050211, end: 20050221
  2. DIGOXIN [Concomitant]
  3. WARFARIN SODIUM [Concomitant]
  4. SPIRONOLACTONE [Concomitant]
  5. ALLOPURINOL [Concomitant]
  6. METFORMIN [Concomitant]
  7. PRAVASTATIN [Concomitant]
  8. ZOPICLONE [Concomitant]
  9. ESTRADIOL [Concomitant]
  10. TORSEMIDE [Concomitant]

REACTIONS (2)
  - RASH MACULO-PAPULAR [None]
  - URTICARIA GENERALISED [None]
